FAERS Safety Report 8602093-4 (Version None)
Quarter: 2012Q3

REPORT INFORMATION
  Report Type: 
  Country: None (occurrence: None)
  Receive Date: 20120817
  Receipt Date: 20120807
  Transmission Date: 20120928
  Serious: Yes (Other)
  Sender: FDA-Public Use
  Company Number: US-JNJFOC-20120804189

PATIENT
  Age: 22 Year
  Sex: Male

DRUGS (3)
  1. RISPERDAL [Suspect]
     Indication: OBSESSIVE-COMPULSIVE DISORDER
     Route: 048
  2. RISPERDAL [Suspect]
     Indication: TACHYPHRENIA
     Route: 048
  3. RISPERDAL [Suspect]
     Indication: ANXIETY
     Route: 048

REACTIONS (3)
  - MOOD SWINGS [None]
  - OBSESSIVE-COMPULSIVE DISORDER [None]
  - SUICIDAL IDEATION [None]
